FAERS Safety Report 23172461 (Version 1)
Quarter: 2023Q4

REPORT INFORMATION
  Report Type: Spontaneous
  Country: CZ (occurrence: None)
  Receive Date: 20231110
  Receipt Date: 20231110
  Transmission Date: 20240109
  Serious: Yes (Other)
  Sender: FDA-Public Use
  Company Number: 2023A254426

PATIENT
  Sex: Female

DRUGS (1)
  1. TAGRISSO [Suspect]
     Active Substance: OSIMERTINIB
     Dosage: UNKNOWN
     Route: 048

REACTIONS (5)
  - Malignant neoplasm progression [Unknown]
  - Metastases to spinal cord [Unknown]
  - Metastases to pelvis [Unknown]
  - Metastases to lung [Unknown]
  - Dermatitis acneiform [Unknown]
